FAERS Safety Report 7430573-6 (Version None)
Quarter: 2011Q2

REPORT INFORMATION
  Report Type: 
  Country: None (occurrence: None)
  Receive Date: 20110421
  Receipt Date: 20100521
  Transmission Date: 20111010
  Serious: No
  Sender: FDA-Public Use
  Company Number: US-ASTRAZENECA-2010SE23642

PATIENT
  Age: 42 Year
  Sex: Female

DRUGS (3)
  1. ZYRTEC [Concomitant]
  2. METOPROLOL SUCCINATE [Suspect]
     Indication: BLOOD PRESSURE INCREASED
     Route: 048
     Dates: start: 20090101, end: 20100520
  3. RHINOCORT [Concomitant]

REACTIONS (4)
  - RESPIRATORY RATE INCREASED [None]
  - DIZZINESS [None]
  - BLOOD PRESSURE DECREASED [None]
  - NAUSEA [None]
